FAERS Safety Report 4846844-3 (Version None)
Quarter: 2005Q4

REPORT INFORMATION
  Report Type: 
  Country: None (occurrence: None)
  Receive Date: 20051207
  Receipt Date: 20051125
  Transmission Date: 20060501
  Serious: Yes (Death)
  Sender: FDA-Public Use
  Company Number: JP-BRACCO-BRO-009608

PATIENT
  Sex: Male
  Weight: 60 kg

DRUGS (4)
  1. IOPAMIRON [Suspect]
     Indication: METASTASES TO LIVER
     Dosage: 1 ML/SEC
     Route: 042
     Dates: start: 20051020, end: 20051020
  2. IOPAMIRON [Suspect]
     Dosage: 1 ML/SEC
     Route: 042
     Dates: start: 20051020, end: 20051020
  3. ANTIBIOTICS [Concomitant]
     Route: 042
  4. MS CONTIN [Concomitant]
     Route: 048

REACTIONS (2)
  - HEPATIC FAILURE [None]
  - METASTASES TO LIVER [None]
